FAERS Safety Report 9538586 (Version 1)
Quarter: 2013Q3

REPORT INFORMATION
  Report Type: Spontaneous
  Country: US (occurrence: None)
  Receive Date: 20130917
  Receipt Date: 20130917
  Transmission Date: 20140515
  Serious: Yes (Other)
  Sender: FDA-Public Use
  Company Number: 1865382

PATIENT
  Age: 49 Year
  Sex: Female
  Weight: 59.55 kg

DRUGS (7)
  1. DOCETAXEL [Suspect]
     Indication: BREAST DISORDER
     Dosage: 124 MG, 1 WEEK, IV
     Route: 042
     Dates: start: 20130723, end: 20130723
  2. DOXORUBICIN [Concomitant]
  3. CYCLOPHOSPHAMIDE [Concomitant]
  4. ALOXI [Concomitant]
  5. DECADRON [Concomitant]
  6. EMEND [Concomitant]
  7. NEULASTA [Concomitant]

REACTIONS (3)
  - Colitis [None]
  - White blood cell count decreased [None]
  - Blood potassium decreased [None]
